FAERS Safety Report 7512667-X (Version None)
Quarter: 2011Q2

REPORT INFORMATION
  Report Type: 
  Country: None (occurrence: None)
  Receive Date: 20110525
  Receipt Date: 20110525
  Transmission Date: 20111010
  Serious: Yes (Hospitalization)
  Sender: FDA-Public Use
  Company Number: None

PATIENT
  Sex: Female
  Weight: 56.4 kg

DRUGS (2)
  1. BEVACIZUMAB 15MG/KG GENENTECH [Suspect]
     Indication: NON-SMALL CELL LUNG CANCER
     Dosage: 15 MG/KG X 56.4KG = 845MG EVERY 21 DAYS IV
     Route: 042
     Dates: start: 20100120, end: 20110511
  2. ERLOTINIB HYDROCHLORIDE [Suspect]
     Dosage: 100 MG EVERY DAY ORAL
     Route: 048
     Dates: start: 20110120

REACTIONS (2)
  - DIARRHOEA [None]
  - ABDOMINAL PAIN [None]
